FAERS Safety Report 20993681 (Version 1)
Quarter: 2022Q2

REPORT INFORMATION
  Report Type: Report from Study
  Country: EG (occurrence: EG)
  Receive Date: 20220622
  Receipt Date: 20220622
  Transmission Date: 20220721
  Serious: Yes (Hospitalization, Other)
  Sender: FDA-Public Use
  Company Number: EG-NOVARTISPH-NVSC2022EG139490

PATIENT
  Age: 71 Year
  Sex: Male

DRUGS (12)
  1. ENTRESTO [Suspect]
     Active Substance: SACUBITRIL\VALSARTAN
     Indication: Cardiac failure
     Dosage: 1 DOSAGE FORM, BID (50 MG)(2 WEEKS AGO)
     Route: 048
     Dates: start: 20211113
  2. ENTRESTO [Suspect]
     Active Substance: SACUBITRIL\VALSARTAN
     Indication: Ejection fraction
     Dosage: 50 MG, (2 TABLETS IN THE MORNING AND ONE TABLET AT NIGHT)
     Route: 048
  3. PLAVIX [Concomitant]
     Active Substance: CLOPIDOGREL BISULFATE
     Indication: Product used for unknown indication
     Dosage: 1 DOSAGE FORM, QD (3 YEARS AGO)
     Route: 065
  4. ASPIRIN [Concomitant]
     Active Substance: ASPIRIN
     Indication: Blood test
     Dosage: 1 DOSAGE FORM, QD (YEAR AGO)
     Route: 065
  5. CARVEDILOL [Concomitant]
     Active Substance: CARVEDILOL
     Indication: Product used for unknown indication
     Dosage: 1 DOSAGE FORM, QD (2 YEARS AGO)
     Route: 065
  6. IVABRADINE [Concomitant]
     Active Substance: IVABRADINE
     Indication: Product used for unknown indication
     Dosage: 2 DOSAGE FORM, QD ( IN THE MORNING)
     Route: 065
  7. EXAMIDE [Concomitant]
     Indication: Polyuria
     Route: 065
  8. DAPAGLIFLOZIN [Concomitant]
     Active Substance: DAPAGLIFLOZIN
     Indication: Diabetes mellitus
     Dosage: 1 DOSAGE FORM, QD
     Route: 065
  9. GLUCOPHAGE [Concomitant]
     Active Substance: METFORMIN HYDROCHLORIDE
     Indication: Diabetes mellitus
     Dosage: 500 MGAND THEN 1000 MG
     Route: 065
     Dates: start: 202111
  10. GLUCOPHAGE [Concomitant]
     Active Substance: METFORMIN HYDROCHLORIDE
     Dosage: 1000 MG, QD
     Route: 065
     Dates: start: 202205
  11. JANUMET [Concomitant]
     Active Substance: METFORMIN HYDROCHLORIDE\SITAGLIPTIN PHOSPHATE
     Indication: Diabetes mellitus
     Dosage: 1 DOSAGE FORM, QD
     Route: 065
  12. IRON [Concomitant]
     Active Substance: IRON
     Indication: Mineral supplementation
     Dosage: ONE TABLET PER DAY 3 DAYS PER WEEK
     Route: 065

REACTIONS (3)
  - Myocardial infarction [Recovering/Resolving]
  - Ejection fraction abnormal [Recovering/Resolving]
  - Hypotension [Recovering/Resolving]

NARRATIVE: CASE EVENT DATE: 20211101
